FAERS Safety Report 10097243 (Version 4)
Quarter: 2014Q3

REPORT INFORMATION
  Report Type: Spontaneous
  Country: JP (occurrence: JP)
  Receive Date: 20140422
  Receipt Date: 20140829
  Transmission Date: 20150326
  Serious: Yes (Other)
  Sender: FDA-Public Use
  Company Number: PHHY2014JP048245

PATIENT
  Age: 72 Year
  Sex: Female
  Weight: 44 kg

DRUGS (9)
  1. PACLITAXEL. [Concomitant]
     Active Substance: PACLITAXEL
     Indication: BREAST CANCER
     Dosage: 70 MG, UNK
     Route: 041
     Dates: start: 20081118
  2. AVASTIN [Suspect]
     Active Substance: BEVACIZUMAB
     Indication: BREAST CANCER
     Dosage: 420 MG, DAILY
     Route: 041
     Dates: start: 20130107
  3. ZOMETA [Suspect]
     Active Substance: ZOLEDRONIC ACID
     Indication: METASTASES TO BONE
     Dosage: 4 MG, PER ADMINISTRATION
     Route: 041
     Dates: start: 20100819, end: 20140317
  4. DOCETAXEL [Concomitant]
     Active Substance: DOCETAXEL
     Indication: BREAST CANCER
     Dosage: 70 MG, UNK
     Route: 041
     Dates: start: 20101202, end: 20110203
  5. TS-1 [Concomitant]
     Active Substance: GIMERACIL\OTERACIL POTASSIUM\TEGAFUR
     Indication: BREAST CANCER
     Dosage: 80 MG, UNK
     Route: 041
     Dates: start: 20110224, end: 201207
  6. PACLITAXEL. [Concomitant]
     Active Substance: PACLITAXEL
     Dosage: 60 MG, UNK
     Route: 041
  7. GEMCITABINE [Concomitant]
     Active Substance: GEMCITABINE\GEMCITABINE HYDROCHLORIDE
     Indication: BREAST CANCER
     Dosage: 1600 MG, UNK
     Route: 041
     Dates: start: 20101001, end: 20101119
  8. HALAVEN [Concomitant]
     Active Substance: ERIBULIN MESYLATE
     Indication: BREAST CANCER
     Dosage: 1.8 MG, UNK
     Route: 041
     Dates: start: 20120723, end: 20121225
  9. NAVELBINE [Concomitant]
     Active Substance: VINORELBINE TARTRATE
     Indication: BREAST CANCER
     Dosage: 35 MG, UNK
     Route: 041
     Dates: start: 20100729, end: 20100917

REACTIONS (13)
  - Osteomyelitis [Not Recovered/Not Resolved]
  - Swelling [Unknown]
  - Gingivitis [Unknown]
  - Sinusitis [Unknown]
  - Gingival swelling [Unknown]
  - Exposed bone in jaw [Unknown]
  - General physical health deterioration [Unknown]
  - Periodontitis [Unknown]
  - Alveolar bone resorption [Unknown]
  - Erythema [Unknown]
  - Soft tissue infection [Unknown]
  - Gingival erythema [Unknown]
  - Gingival bleeding [Unknown]

NARRATIVE: CASE EVENT DATE: 20140331
